FAERS Safety Report 5116964-7 (Version None)
Quarter: 2006Q3

REPORT INFORMATION
  Report Type: 
  Country: None (occurrence: None)
  Receive Date: 20060922
  Receipt Date: 20060905
  Transmission Date: 20061208
  Serious: Yes (Life-Threatening, Hospitalization)
  Sender: FDA-Public Use
  Company Number: 2006-143423-NL

PATIENT
  Age: 82 Year
  Sex: Female

DRUGS (9)
  1. DANAPAROID SODIUM [Suspect]
     Indication: DISSEMINATED INTRAVASCULAR COAGULATION
     Dosage: INTRAVENOUS DRIP
     Route: 041
     Dates: start: 20060201, end: 20060208
  2. CILASTATIN W/IMIPENEM [Concomitant]
  3. IMMUNE GLOBULIN INTRAVENOUS (HUMAN) [Concomitant]
  4. ANTITHROMBIN III [Concomitant]
  5. CEFTAZIDIME [Concomitant]
  6. CLINDAMYCIN PHOSPHATE [Concomitant]
  7. MICAFUNGIN SODIUM [Concomitant]
  8. ULINASTATIN [Concomitant]
  9. HYDROCORTISONE SODIUM PHOSPHATE [Concomitant]

REACTIONS (3)
  - ANAEMIA [None]
  - GASTROINTESTINAL HAEMORRHAGE [None]
  - POSTOPERATIVE INFECTION [None]
